FAERS Safety Report 10270814 (Version 1)
Quarter: 2014Q1

REPORT INFORMATION
  Report Type: Spontaneous
  Country: US (occurrence: None)
  Receive Date: 20140306
  Receipt Date: 20140306
  Transmission Date: 20141002
  Serious: Yes (Other)
  Sender: FDA-Public Use
  Company Number: 163-21880-13083718

PATIENT
  Age: 61 Year
  Sex: Male
  Weight: 97.5 kg

DRUGS (7)
  1. REVLIMID (LENALIDOMIDE) (10 MILLIGRAM, CAPSULES) [Suspect]
     Indication: PLASMA CELL MYELOMA
     Dosage: 10 MG, 21 IN 28 D, PO
     Route: 048
     Dates: start: 20090521
  2. HYDROMORPHONE (HYDROMORPHONE) (TABLETS) [Concomitant]
  3. GABAPENTIN (GABAPENTIN) (CAPSULES) [Concomitant]
  4. SERTRALINE HCL (SERTRALINE HYDROCHLORIDE) (TABLETS) [Concomitant]
  5. TESTOSTERONE (TESTOSTERONE) (UNKNOWN) [Concomitant]
  6. VITAMIN D2 (ERGOCALCIFEROL) (TABLETS) [Concomitant]
  7. ASPIRIN (ACETYLSALICYLIC ACID) (ENTERIC-COATED TABLET) [Concomitant]

REACTIONS (1)
  - Deep vein thrombosis [None]
